FAERS Safety Report 7542613-4 (Version None)
Quarter: 2011Q2

REPORT INFORMATION
  Report Type: 
  Country: None (occurrence: None)
  Receive Date: 20110613
  Receipt Date: 20110530
  Transmission Date: 20111010
  Serious: Yes (Hospitalization)
  Sender: FDA-Public Use
  Company Number: CA-JNJFOC-20110600807

PATIENT
  Sex: Female
  Weight: 68 kg

DRUGS (5)
  1. FERROUS SULFATE TAB [Concomitant]
  2. VITAMIN D [Concomitant]
  3. REMICADE [Suspect]
     Indication: CROHN'S DISEASE
     Route: 042
     Dates: start: 20110303
  4. GABAPENTIN [Concomitant]
  5. CALCIUM CARBONATE [Concomitant]

REACTIONS (1)
  - CROHN'S DISEASE [None]
